FAERS Safety Report 5994581-4 (Version None)
Quarter: 2008Q4

REPORT INFORMATION
  Report Type: 
  Country: None (occurrence: None)
  Receive Date: 20081212
  Receipt Date: 20080909
  Transmission Date: 20090506
  Serious: No
  Sender: FDA-Public Use
  Company Number: US-ABBOTT-08P-163-0475407-00

PATIENT
  Sex: Female
  Weight: 71.732 kg

DRUGS (21)
  1. HUMIRA [Suspect]
     Indication: RHEUMATOID ARTHRITIS
     Route: 058
     Dates: start: 20080610
  2. ACETYLSALICYLIC ACID SRT [Concomitant]
     Indication: COAGULOPATHY
     Route: 048
  3. PREDNISONE TAB [Concomitant]
     Indication: RHEUMATOID ARTHRITIS
     Route: 048
     Dates: start: 20080905
  4. CETIRIZINE HYDROCHLORIDE [Concomitant]
     Indication: HYPERSENSITIVITY
     Route: 048
  5. CETIRIZINE HYDROCHLORIDE [Concomitant]
     Indication: ASTHMA
  6. MONTELUKAST SODIUM [Concomitant]
     Indication: HYPERSENSITIVITY
     Route: 048
  7. MONTELUKAST SODIUM [Concomitant]
     Indication: ASTHMA
  8. ALBUTEROL [Concomitant]
     Indication: ASTHMA
     Dosage: AS NEEDED
     Route: 048
  9. SERETIDE [Concomitant]
     Indication: ASTHMA
     Route: 048
  10. METHOTREXATE [Concomitant]
     Indication: RHEUMATOID ARTHRITIS
     Dosage: 20MG DAILY DOSE, 2.5MG 8 TABS WEEKLY
     Route: 048
  11. PANTOPRAZOLE SODIUM [Concomitant]
     Indication: GASTROOESOPHAGEAL REFLUX DISEASE
     Route: 048
  12. GABAPENTIN [Concomitant]
     Indication: RHEUMATOID ARTHRITIS
     Dosage: 2 AT BEDTIME
     Route: 048
     Dates: start: 20080903
  13. METANX [Concomitant]
     Indication: COAGULOPATHY
     Route: 048
     Dates: start: 20060101
  14. DULOXETINE HYDROCHLORIDE [Concomitant]
     Indication: DEPRESSION
     Route: 048
     Dates: start: 20070401
  15. SERTRALINE [Concomitant]
     Indication: DEPRESSION
     Dosage: DAILY AT BEDTIME
     Route: 048
     Dates: start: 20070401
  16. BUPROPION HCL [Concomitant]
     Indication: DEPRESSION
     Dosage: 200MG IN AM AND 100MG AT BEDTIME
     Route: 048
     Dates: start: 20070401
  17. CLONAZEPAM [Concomitant]
     Indication: DEPRESSION
     Dosage: 4 X DAILY AS REQUIRED
     Route: 048
     Dates: start: 20070401
  18. ESZOPICLONE [Concomitant]
     Indication: SLEEP DISORDER THERAPY
     Dosage: AT BEDTIME AS NEEDED
     Route: 048
     Dates: start: 20070401
  19. FISH OIL [Concomitant]
     Indication: SUPPLEMENTATION THERAPY
     Route: 048
  20. MULTI-VITAMINS [Concomitant]
     Indication: VITAMIN SUPPLEMENTATION
     Route: 048
  21. IRON [Concomitant]
     Indication: MINERAL SUPPLEMENTATION
     Dosage: 2-3 X DAILY DEPENDING ON LABS
     Route: 048

REACTIONS (8)
  - BACK PAIN [None]
  - CONTUSION [None]
  - GAIT DISTURBANCE [None]
  - JOINT SWELLING [None]
  - PAIN [None]
  - RED BLOOD CELL SEDIMENTATION RATE INCREASED [None]
  - RHEUMATOID ARTHRITIS [None]
  - UPPER RESPIRATORY TRACT INFECTION [None]
